FAERS Safety Report 15753459 (Version 1)
Quarter: 2018Q4

REPORT INFORMATION
  Report Type: Spontaneous
  Country: US (occurrence: US)
  Receive Date: 20181222
  Receipt Date: 20181222
  Transmission Date: 20190205
  Serious: No
  Sender: FDA-Public Use
  Company Number: US-MALLINCKRODT-T201803119

PATIENT
  Sex: Female

DRUGS (1)
  1. FENTANYL CITRATE. [Suspect]
     Active Substance: FENTANYL CITRATE
     Indication: PAIN
     Dosage: 800 MCG 4 TIMES A DAY
     Route: 065

REACTIONS (2)
  - Product dose omission [Unknown]
  - Wheelchair user [Unknown]
